FAERS Safety Report 18196119 (Version 1)
Quarter: 2020Q3

REPORT INFORMATION
  Report Type: Spontaneous
  Country: US (occurrence: US)
  Receive Date: 20200825
  Receipt Date: 20200825
  Transmission Date: 20201103
  Serious: No
  Sender: FDA-Public Use
  Company Number: US-US-PROVELL PHARMACEUTICALS LLC-9181527

PATIENT

DRUGS (1)
  1. EUTHYROX [Suspect]
     Active Substance: LEVOTHYROXINE SODIUM
     Indication: PRODUCT USED FOR UNKNOWN INDICATION

REACTIONS (5)
  - Hyperhidrosis [Unknown]
  - Malaise [Unknown]
  - Fatigue [Unknown]
  - Accidental overdose [Unknown]
  - Palpitations [Unknown]
